FAERS Safety Report 25898500 (Version 1)
Quarter: 2025Q4

REPORT INFORMATION
  Report Type: Spontaneous
  Country: US (occurrence: US)
  Receive Date: 20251009
  Receipt Date: 20251009
  Transmission Date: 20260118
  Serious: Yes (Hospitalization, Other)
  Sender: ULTRAGENYX PHARMACEUTICAL
  Company Number: US-ULTRAGENYX PHARMACEUTICAL INC.-US-UGX-25-01916

PATIENT
  Age: 4 Year
  Sex: Male

DRUGS (1)
  1. DOJOLVI [Suspect]
     Active Substance: TRIHEPTANOIN
     Indication: Long-chain acyl-coenzyme A dehydrogenase deficiency
     Dosage: 5 MILLILITER, EIGHT TIMES PER DAY, VIA FEEDING TUBE

REACTIONS (3)
  - Cardiac disorder [Unknown]
  - Drug-device interaction [Not Recovered/Not Resolved]
  - Device material issue [Not Recovered/Not Resolved]
